FAERS Safety Report 13440754 (Version 2)
Quarter: 2017Q4

REPORT INFORMATION
  Report Type: Spontaneous
  Country: IT (occurrence: IT)
  Receive Date: 20170413
  Receipt Date: 20171121
  Transmission Date: 20180320
  Serious: Yes (Hospitalization)
  Sender: FDA-Public Use
  Company Number: IT-ACCORD-050109

PATIENT
  Age: 79 Year
  Sex: Female

DRUGS (5)
  1. MESTINON MEDA PHARMA S.P.A [Concomitant]
     Indication: PRODUCT USED FOR UNKNOWN INDICATION
     Dosage: STRENGTH: 60 MG COMPRESSE
  2. CLEXANE SANOFI S.P.A [Concomitant]
     Indication: PRODUCT USED FOR UNKNOWN INDICATION
     Dosage: 4000 U.I. AXA/0,4 ML INJECTABLE SOLUTION
  3. MODURETIC 5/50 MSD ITALIA S.R.L [Concomitant]
     Indication: PRODUCT USED FOR UNKNOWN INDICATION
     Dosage: 5 MG + 50 MG COMPRESSE
  4. MYCOPHENOLATE MOFETIL ACCORD [Suspect]
     Active Substance: MYCOPHENOLATE MOFETIL
     Indication: MYASTHENIA GRAVIS
     Dosage: STRENGTH: 500 MG
     Route: 048
     Dates: start: 20170204, end: 20170327
  5. LANOXIN [Concomitant]
     Active Substance: DIGOXIN
     Indication: PRODUCT USED FOR UNKNOWN INDICATION
     Dosage: STRENGTH: 0,250 MG COMPRESSE

REACTIONS (3)
  - Myasthenia gravis crisis [Recovered/Resolved]
  - Off label use [Unknown]
  - Diarrhoea [Unknown]

NARRATIVE: CASE EVENT DATE: 20170323
